FAERS Safety Report 9616668 (Version 2)
Quarter: 2014Q2

REPORT INFORMATION
  Report Type: Report from Study
  Country: US (occurrence: US)
  Receive Date: 20131011
  Receipt Date: 20140429
  Transmission Date: 20141212
  Serious: Yes (Hospitalization)
  Sender: FDA-Public Use
  Company Number: PHHO2013US012886

PATIENT
  Age: 62 Year
  Sex: Female
  Weight: 71.8 kg

DRUGS (3)
  1. CERTICAN [Suspect]
     Indication: RENAL TRANSPLANT
     Dosage: 1 MG, BID
     Dates: start: 20130709, end: 20130815
  2. TACROLIMUS [Concomitant]
     Dosage: 3 MG, (1 MG QAM/2 MG QPM)
  3. PREDNISONE [Concomitant]
     Dosage: 5 MG, DAILY
     Route: 048

REACTIONS (2)
  - Cardiac failure congestive [Recovering/Resolving]
  - Pleural effusion [Recovering/Resolving]
